FAERS Safety Report 24778184 (Version 1)
Quarter: 2024Q4

REPORT INFORMATION
  Report Type: Spontaneous
  Country: EG (occurrence: EG)
  Receive Date: 20241226
  Receipt Date: 20241226
  Transmission Date: 20250115
  Serious: Yes (Hospitalization, Other)
  Sender: NOVO NORDISK
  Company Number: EG-NOVOPROD-1311638

PATIENT
  Age: 222 Month
  Sex: Female
  Weight: 57 kg

DRUGS (9)
  1. NOVORAPID [Suspect]
     Active Substance: INSULIN ASPART
     Dosage: 14 IU
     Route: 058
  2. NOVORAPID [Suspect]
     Active Substance: INSULIN ASPART
     Dosage: 10 IU
     Route: 058
  3. NOVORAPID [Suspect]
     Active Substance: INSULIN ASPART
     Indication: Type 1 diabetes mellitus
     Dosage: 6 IU
     Route: 058
  4. TOUJEO [Concomitant]
     Active Substance: INSULIN GLARGINE
     Dosage: 25 IU, QD
     Route: 058
  5. ACTRAPID [Suspect]
     Active Substance: INSULIN HUMAN
     Indication: Type 1 diabetes mellitus
     Dosage: 5 IU
  6. LANTUS [Concomitant]
     Active Substance: INSULIN GLARGINE
     Dosage: UNK
  7. NOVORAPID [Suspect]
     Active Substance: INSULIN ASPART
     Dosage: 10 IU WITH BREAKFAST -15 IU WITH LUNCH -10 IU
     Route: 058
  8. NOVORAPID [Suspect]
     Active Substance: INSULIN ASPART
     Indication: Type 1 diabetes mellitus
     Dosage: 10 IU WITH BREAKFAST -12 IU WITH LUNCH -10 IU
     Route: 058
  9. NOVORAPID [Suspect]
     Active Substance: INSULIN ASPART
     Dosage: 20 IU
     Route: 058

REACTIONS (7)
  - Seizure [Recovered/Resolved]
  - Diabetic ketoacidosis [Recovered/Resolved]
  - Vision blurred [Unknown]
  - Hyperglycaemia [Not Recovered/Not Resolved]
  - Therapeutic product effect decreased [Unknown]
  - Underdose [Unknown]
  - Product storage error [Unknown]
